FAERS Safety Report 12249226 (Version 1)
Quarter: 2016Q2

REPORT INFORMATION
  Report Type: Spontaneous
  Country: US (occurrence: None)
  Receive Date: 20160407
  Receipt Date: 20160407
  Transmission Date: 20160815
  Serious: Yes (Hospitalization)
  Sender: FDA-Public Use
  Company Number: None

PATIENT
  Age: 63 Year
  Sex: Male
  Weight: 101.5 kg

DRUGS (1)
  1. CIPROFLOXACIN. [Suspect]
     Active Substance: CIPROFLOXACIN
     Indication: WOUND
     Route: 048
     Dates: start: 20160111, end: 20160118

REACTIONS (5)
  - Clostridium difficile colitis [None]
  - Eructation [None]
  - Chest pain [None]
  - Oropharyngeal pain [None]
  - Vomiting [None]

NARRATIVE: CASE EVENT DATE: 20160118
